FAERS Safety Report 18646616 (Version 1)
Quarter: 2020Q4

REPORT INFORMATION
  Report Type: Other
  Country: US (occurrence: US)
  Receive Date: 20201221
  Receipt Date: 20201221
  Transmission Date: 20210114
  Serious: No
  Sender: FDA-Public Use
  Company Number: US-ACORDA-ACO_166525_2020

PATIENT
  Sex: Male

DRUGS (3)
  1. INBRIJA [Suspect]
     Active Substance: LEVODOPA
     Indication: PARKINSON^S DISEASE
     Dosage: 2 DOSAGE FORM, PRN, NOT TO EXCEED 5 DOSES PER DAY
     Dates: start: 20201007
  2. INBRIJA [Suspect]
     Active Substance: LEVODOPA
     Indication: ON AND OFF PHENOMENON
  3. SINEMET [Suspect]
     Active Substance: CARBIDOPA\LEVODOPA
     Indication: PRODUCT USED FOR UNKNOWN INDICATION
     Dosage: 25/100 MG EVERY 2 HOURS
     Route: 065

REACTIONS (5)
  - Intentional underdose [Unknown]
  - Therapeutic response unexpected [Unknown]
  - Pain [Unknown]
  - Discomfort [Unknown]
  - Parkinson^s disease [Unknown]
